FAERS Safety Report 6517898-3 (Version None)
Quarter: 2009Q4

REPORT INFORMATION
  Report Type: 
  Country: None (occurrence: None)
  Receive Date: 20091224
  Receipt Date: 20091214
  Transmission Date: 20100525
  Serious: Yes (Life-Threatening, Hospitalization)
  Sender: FDA-Public Use
  Company Number: FR-B.I. PHARMACEUTICALS,INC./RIDGEFIELD-2009-FF-00853FF

PATIENT
  Sex: Female

DRUGS (4)
  1. VIRAMUNE [Suspect]
     Indication: HIV TEST POSITIVE
     Dosage: 200 MG
     Route: 048
     Dates: start: 20091105, end: 20091201
  2. VIRAMUNE [Suspect]
     Dosage: 400 MG
     Route: 048
     Dates: start: 20091201
  3. COMBIVIR [Concomitant]
  4. PANENZA [Concomitant]
     Indication: INFLUENZA
     Dates: start: 20091121

REACTIONS (7)
  - ACUTE HEPATIC FAILURE [None]
  - CARDIAC ARREST [None]
  - CYTOLYTIC HEPATITIS [None]
  - GASTRIC HAEMORRHAGE [None]
  - HEADACHE [None]
  - PYREXIA [None]
  - VERTIGO [None]
